FAERS Safety Report 4613192-6 (Version None)
Quarter: 2005Q1

REPORT INFORMATION
  Report Type: 
  Country: None (occurrence: None)
  Receive Date: 20050315
  Receipt Date: 20050302
  Transmission Date: 20050727
  Serious: Yes (Hospitalization)
  Sender: FDA-Public Use
  Company Number: 2003167981JP

PATIENT
  Age: 6 Year
  Sex: Male
  Weight: 15.6 kg

DRUGS (8)
  1. GENOTROPIN [Suspect]
     Indication: PRADER-WILLI SYNDROME
     Dosage: (0.25 MG/KG/WEEK), SUBCUTANEOUS
     Route: 058
     Dates: start: 20020911
  2. VICCILLIN-S (AMPICILLIN, CLOXACILLIN SODIUM) [Concomitant]
  3. SEVOFLURANE [Concomitant]
  4. DROPERIDOL [Concomitant]
  5. FENTANYL CITRATE [Concomitant]
  6. NEOSTIGMINE BROMIDE (NEOSTIGMINE BROMIDE) [Concomitant]
  7. PROPOFOL [Concomitant]
  8. ATROPINE [Concomitant]

REACTIONS (5)
  - ADENOIDAL HYPERTROPHY [None]
  - DISEASE PROGRESSION [None]
  - OBSTRUCTIVE AIRWAYS DISORDER [None]
  - SLEEP APNOEA SYNDROME [None]
  - TONSILLAR HYPERTROPHY [None]
